FAERS Safety Report 7110492-5 (Version None)
Quarter: 2010Q4

REPORT INFORMATION
  Report Type: 
  Country: None (occurrence: None)
  Receive Date: 20101116
  Receipt Date: 20101116
  Transmission Date: 20110411
  Serious: Yes (Hospitalization)
  Sender: FDA-Public Use
  Company Number: None

PATIENT
  Sex: Male

DRUGS (1)
  1. ATENOLOL [Suspect]
     Dosage: 1 DAILY BY MOUTH DAILY
     Route: 048
     Dates: start: 20091208

REACTIONS (4)
  - BLOOD PRESSURE ABNORMAL [None]
  - DIZZINESS [None]
  - HEART RATE ABNORMAL [None]
  - PRODUCT QUALITY ISSUE [None]
